FAERS Safety Report 11198951 (Version 2)
Quarter: 2015Q3

REPORT INFORMATION
  Report Type: Spontaneous
  Country: DE (occurrence: DE)
  Receive Date: 20150618
  Receipt Date: 20150805
  Transmission Date: 20151125
  Serious: Yes (Hospitalization)
  Sender: FDA-Public Use
  Company Number: DE-UCBSA-2015019201

PATIENT
  Age: 63 Year
  Sex: Male

DRUGS (7)
  1. LEVETIRACETAM. [Suspect]
     Active Substance: LEVETIRACETAM
     Indication: CLONIC CONVULSION
     Dosage: 1250 MG, 2X/DAY (BID)
     Route: 048
     Dates: start: 2015, end: 2015
  2. LEVETIRACETAM. [Suspect]
     Active Substance: LEVETIRACETAM
     Dosage: 3 G/DAY
     Route: 048
     Dates: start: 2015, end: 2015
  3. LACOSAMIDE [Suspect]
     Active Substance: LACOSAMIDE
     Indication: CLONIC CONVULSION
     Dosage: 200 MG, 2X/DAY (BID)
     Route: 048
     Dates: start: 2015, end: 2015
  4. LACOSAMIDE [Suspect]
     Active Substance: LACOSAMIDE
     Dosage: 600 MG/DAY
     Route: 048
     Dates: start: 2015, end: 2015
  5. COTRIM [Concomitant]
     Active Substance: SULFAMETHOXAZOLE\TRIMETHOPRIM
     Indication: STENOTROPHOMONAS INFECTION
  6. LACOSAMIDE [Suspect]
     Active Substance: LACOSAMIDE
     Dosage: 600 MG/DAY
     Route: 042
     Dates: start: 2015, end: 2015
  7. MOXIFLOXACIN. [Concomitant]
     Active Substance: MOXIFLOXACIN
     Indication: STENOTROPHOMONAS INFECTION

REACTIONS (8)
  - Off label use [Unknown]
  - Seizure [Recovered/Resolved]
  - Postictal paralysis [Recovering/Resolving]
  - Dysphagia [Unknown]
  - Pneumonia aspiration [Unknown]
  - Overdose [Unknown]
  - Gastrooesophageal reflux disease [Recovering/Resolving]
  - Brain abscess [Unknown]

NARRATIVE: CASE EVENT DATE: 2015
